FAERS Safety Report 8848014 (Version 10)
Quarter: 2013Q2

REPORT INFORMATION
  Report Type: Spontaneous
  Country: US (occurrence: US)
  Receive Date: 20121018
  Receipt Date: 20130506
  Transmission Date: 20140414
  Serious: Yes (Other)
  Sender: FDA-Public Use
  Company Number: PHEH2012US020439

PATIENT
  Sex: Female

DRUGS (8)
  1. ZOMETA [Suspect]
     Indication: NEOPLASM MALIGNANT
     Dosage: 4 MG, QMO
     Dates: start: 20020725, end: 20071120
  2. ZOMETA [Suspect]
     Indication: METASTASES TO SPINE
  3. ZOMETA [Suspect]
     Indication: BREAST CANCER METASTATIC
  4. FUROSEMIDE [Concomitant]
  5. ROPINIROLE [Concomitant]
  6. WARFARIN [Concomitant]
  7. ZOLPIDEM [Concomitant]
  8. ALPRAZOLAM [Concomitant]

REACTIONS (33)
  - Hypoxia [Unknown]
  - Wound [Unknown]
  - Gingival disorder [Unknown]
  - Vertebral foraminal stenosis [Unknown]
  - Joint injury [Unknown]
  - Dyslipidaemia [Unknown]
  - Amnesia [Unknown]
  - Osteonecrosis of jaw [Unknown]
  - Oral disorder [Unknown]
  - Somnambulism [Unknown]
  - Mitral valve calcification [Unknown]
  - Thrombocytosis [Unknown]
  - Road traffic accident [Unknown]
  - Contusion [Unknown]
  - Transient ischaemic attack [Unknown]
  - Varicose ulceration [Unknown]
  - Bronchitis [Unknown]
  - Polycythaemia [Unknown]
  - Skin atrophy [Unknown]
  - Leukocytosis [Unknown]
  - Cardiac murmur [Unknown]
  - Peripheral vascular disorder [Unknown]
  - Pulmonary mass [Unknown]
  - Lumbar spinal stenosis [Unknown]
  - Ecchymosis [Unknown]
  - Sinus congestion [Unknown]
  - Dyspepsia [Unknown]
  - Cough [Unknown]
  - Rhinorrhoea [Unknown]
  - Vertigo [Unknown]
  - Musculoskeletal chest pain [Unknown]
  - Diarrhoea [Unknown]
  - Pain in extremity [Unknown]
